FAERS Safety Report 9015825 (Version 2)
Quarter: 2013Q1

REPORT INFORMATION
  Report Type: Spontaneous
  Country: US (occurrence: None)
  Receive Date: 20121231
  Receipt Date: 20130125
  Transmission Date: 20140127
  Serious: Yes (Death)
  Sender: FDA-Public Use
  Company Number: DKLU1087397

PATIENT
  Age: 1 Month
  Sex: Female

DRUGS (1)
  1. SABRIL [Suspect]
     Indication: INFANTILE SPASMS

REACTIONS (1)
  - No adverse event [None]
